FAERS Safety Report 19130651 (Version 1)
Quarter: 2021Q2

REPORT INFORMATION
  Report Type: Spontaneous
  Country: CA (occurrence: CA)
  Receive Date: 20210413
  Receipt Date: 20210413
  Transmission Date: 20210717
  Serious: Yes (Other)
  Sender: FDA-Public Use
  Company Number: CA-BAUSCH-BL-2021-011809

PATIENT
  Age: 30 Year
  Sex: Male
  Weight: 122 kg

DRUGS (3)
  1. BUDESONIDE/FORMOTEROL FUMARATE [Suspect]
     Active Substance: BUDESONIDE\FORMOTEROL FUMARATE
     Indication: PRODUCT USED FOR UNKNOWN INDICATION
  2. TIOTROPIUM BROMIDE [Suspect]
     Active Substance: TIOTROPIUM BROMIDE
     Indication: PRODUCT USED FOR UNKNOWN INDICATION
  3. SALBUTAMOL SULFATE [Suspect]
     Active Substance: ALBUTEROL SULFATE
     Indication: PRODUCT USED FOR UNKNOWN INDICATION

REACTIONS (10)
  - Weight decreased [Unknown]
  - Cough [Unknown]
  - Asthma [Unknown]
  - Obstructive airways disorder [Unknown]
  - Respiratory failure [Unknown]
  - Hypoxia [Unknown]
  - Obesity [Unknown]
  - Respiratory tract infection [Unknown]
  - Wheezing [Unknown]
  - Pickwickian syndrome [Unknown]
